FAERS Safety Report 9375009 (Version 4)
Quarter: 2014Q2

REPORT INFORMATION
  Report Type: Spontaneous
  Country: CN (occurrence: CN)
  Receive Date: 20130628
  Receipt Date: 20140515
  Transmission Date: 20141212
  Serious: Yes (Hospitalization)
  Sender: FDA-Public Use
  Company Number: PHHY2013CN066567

PATIENT
  Age: 48 Year
  Sex: Female

DRUGS (4)
  1. LESCOL XL [Suspect]
     Dosage: 80 MG, (1 DF)
     Route: 048
     Dates: start: 201305
  2. LESCOL XL [Suspect]
     Dosage: 80 MG, QD
     Route: 048
     Dates: start: 20130516, end: 20130618
  3. LESCOL XL [Suspect]
     Dates: start: 20130601
  4. LESCOL XL [Suspect]
     Dates: start: 20130618

REACTIONS (8)
  - Ocular discomfort [Unknown]
  - Vision blurred [Unknown]
  - Myocardial necrosis marker increased [Unknown]
  - Blood creatinine increased [Unknown]
  - Pyrexia [Unknown]
  - Abdominal pain [Unknown]
  - Transaminases increased [Unknown]
  - Discomfort [Unknown]
